FAERS Safety Report 23269741 (Version 1)
Quarter: 2023Q4

REPORT INFORMATION
  Report Type: Spontaneous
  Country: CN (occurrence: CN)
  Receive Date: 20231207
  Receipt Date: 20231207
  Transmission Date: 20240110
  Serious: Yes (Other)
  Sender: FDA-Public Use
  Company Number: CN-NOVOPROD-1136558

PATIENT
  Age: 19 Year
  Weight: 108 kg

DRUGS (1)
  1. OZEMPIC [Suspect]
     Active Substance: SEMAGLUTIDE
     Indication: Obesity
     Dosage: 4 MG, SINGLE
     Dates: start: 20231024, end: 20231024

REACTIONS (8)
  - Upper gastrointestinal haemorrhage [Recovered/Resolved]
  - Product prescribing error [Unknown]
  - Overdose [Recovered/Resolved]
  - Parosmia [Recovered/Resolved]
  - Taste disorder [Recovered/Resolved]
  - Nausea [Recovered/Resolved]
  - Vomiting [Recovered/Resolved]
  - Off label use [Unknown]

NARRATIVE: CASE EVENT DATE: 20231024
